FAERS Safety Report 9270415 (Version 2)
Quarter: 2013Q2

REPORT INFORMATION
  Report Type: Spontaneous
  Country: JP (occurrence: JP)
  Receive Date: 20130503
  Receipt Date: 20130521
  Transmission Date: 20140414
  Serious: Yes (Hospitalization)
  Sender: FDA-Public Use
  Company Number: JP-UCBSA-084855

PATIENT
  Age: 62 Year
  Sex: Female

DRUGS (4)
  1. CIMZIA [Suspect]
     Indication: RHEUMATOID ARTHRITIS
     Dosage: STRENGTH:200 MG
     Route: 058
     Dates: start: 20130326, end: 2013
  2. METHOTREXATE [Concomitant]
     Dosage: DAILY DOSE: 6 MG
     Route: 048
  3. BAYASPIRIN [Concomitant]
     Dosage: DAILY DOSE: 100 GM
     Route: 048
  4. ALENDRONATE [Concomitant]
     Dosage: DAILY DOSE: 35 MG
     Route: 048

REACTIONS (1)
  - Pneumonia aspiration [Recovered/Resolved]
